FAERS Safety Report 22736877 (Version 3)
Quarter: 2023Q4

REPORT INFORMATION
  Report Type: Spontaneous
  Country: JP (occurrence: JP)
  Receive Date: 20230721
  Receipt Date: 20231204
  Transmission Date: 20240109
  Serious: Yes (Life-Threatening, Other)
  Sender: FDA-Public Use
  Company Number: None

PATIENT

DRUGS (4)
  1. EPIDUO [Suspect]
     Active Substance: ADAPALENE\BENZOYL PEROXIDE
     Indication: Acne
     Dosage: 0.5 GRAM PER DAY
     Route: 061
     Dates: start: 20221112, end: 20230626
  2. COIX SEED EXTRACT [COIX LACRYMA-JOBI SEED EXTRACT] [Concomitant]
     Indication: Skin papilloma
     Dosage: 18 DOSAGE FORM
     Route: 048
     Dates: start: 20230418
  3. FEXOFENADINE HYDROCHLORIDE [Concomitant]
     Active Substance: FEXOFENADINE HYDROCHLORIDE
     Indication: Hypersensitivity
     Dosage: 120 MILLIGRAM
     Route: 048
     Dates: start: 20230509
  4. ZEBIAX [OZENOXACIN] [Concomitant]
     Indication: Product used for unknown indication
     Dosage: 4 MILLIGRAM
     Route: 061
     Dates: start: 20170310

REACTIONS (3)
  - Anaphylactic reaction [Recovered/Resolved]
  - Urticaria [Recovered/Resolved]
  - Dyspnoea [Recovered/Resolved]

NARRATIVE: CASE EVENT DATE: 20230627
